FAERS Safety Report 12956395 (Version 1)
Quarter: 2016Q4

REPORT INFORMATION
  Report Type: Spontaneous
  Country: US (occurrence: US)
  Receive Date: 20161118
  Receipt Date: 20161118
  Transmission Date: 20170207
  Serious: Yes (Life-Threatening)
  Sender: FDA-Public Use
  Company Number: US-MIST-NMS-2016-0029

PATIENT
  Age: 53 Year
  Sex: Male

DRUGS (1)
  1. NITROGLYCERIN. [Suspect]
     Active Substance: NITROGLYCERIN
     Indication: CHEST DISCOMFORT
     Dosage: TWO 0.4MG DOSES

REACTIONS (3)
  - Unresponsive to stimuli [Recovered/Resolved]
  - Nodal rhythm [Recovered/Resolved]
  - Cardiac arrest [Recovered/Resolved]
